FAERS Safety Report 24592853 (Version 1)
Quarter: 2024Q4

REPORT INFORMATION
  Report Type: Spontaneous
  Country: US (occurrence: None)
  Receive Date: 20241107
  Receipt Date: 20241107
  Transmission Date: 20250115
  Serious: Yes (Other)
  Sender: Public
  Company Number: None

PATIENT
  Sex: 0

DRUGS (2)
  1. LOMOTIL [Suspect]
     Active Substance: ATROPINE SULFATE\DIPHENOXYLATE HYDROCHLORIDE
     Indication: Gastrointestinal stoma complication
     Dates: start: 20241106, end: 20241106
  2. XANAX [Suspect]
     Active Substance: ALPRAZOLAM

REACTIONS (6)
  - Lethargy [None]
  - Sluggishness [None]
  - Mental disorder [None]
  - Tremor [None]
  - Wrong product administered [None]
  - Product outer packaging issue [None]

NARRATIVE: CASE EVENT DATE: 20241106
